FAERS Safety Report 7275625-9 (Version None)
Quarter: 2011Q1

REPORT INFORMATION
  Report Type: 
  Country: None (occurrence: None)
  Receive Date: 20110204
  Receipt Date: 20110128
  Transmission Date: 20110831
  Serious: Yes (Other)
  Sender: FDA-Public Use
  Company Number: JP-ROCHE-757350

PATIENT
  Age: 78 Year
  Sex: Female

DRUGS (12)
  1. AVASTIN [Suspect]
     Route: 041
     Dates: start: 20101125, end: 20101125
  2. FLUOROURACIL [Suspect]
     Dosage: DOSAGE IS UNCERTAIN.
     Route: 040
     Dates: start: 20101125, end: 20101125
  3. LEVOFOLINATE [Suspect]
     Dosage: DOSAGE IS UNCERTAIN.
     Route: 041
     Dates: start: 20101125, end: 20101125
  4. LEVOFOLINATE [Suspect]
     Dosage: DOSAGE IS UNCERTAIN.
     Route: 041
     Dates: start: 20101209, end: 20101209
  5. ELPLAT [Suspect]
     Indication: COLON CANCER
     Dosage: DOSAGE IS UNCERTAIN.
     Route: 041
     Dates: start: 20101108, end: 20101108
  6. AVASTIN [Suspect]
     Indication: COLON CANCER
     Route: 041
     Dates: start: 20101108, end: 20101108
  7. FLUOROURACIL [Suspect]
     Indication: COLON CANCER
     Dosage: DOSAGE IS UNCERTAIN.
     Route: 040
     Dates: start: 20101108, end: 20101108
  8. FLUOROURACIL [Suspect]
     Dosage: DOSAGE IS UNCERTAIN. STOP DATE:UNSPECIFIED DATE IN NOV 2010
     Route: 040
     Dates: start: 20101125
  9. FLUOROURACIL [Suspect]
     Dosage: DOSAGE IS UNCERTAIN.
     Route: 040
     Dates: start: 20101209, end: 20101209
  10. LEVOFOLINATE [Suspect]
     Indication: COLON CANCER
     Dosage: DOSAGE IS UNCERTAIN.
     Route: 041
     Dates: start: 20101108, end: 20101108
  11. FLUOROURACIL [Suspect]
     Dosage: DOSAGE IS UNCERTAIN.
     Route: 040
     Dates: start: 20101108, end: 20101101
  12. FLUOROURACIL [Suspect]
     Dosage: DOSAGE IS UNCERTAIN.
     Route: 040
     Dates: start: 20101209, end: 20101201

REACTIONS (1)
  - INTERSTITIAL LUNG DISEASE [None]
